FAERS Safety Report 5313855-3 (Version None)
Quarter: 2007Q2

REPORT INFORMATION
  Report Type: 
  Country: None (occurrence: None)
  Receive Date: 20070501
  Receipt Date: 20070427
  Transmission Date: 20071010
  Serious: Yes (Other)
  Sender: FDA-Public Use
  Company Number: JP-JPN-A200702013

PATIENT
  Age: 66 Year
  Sex: Female
  Weight: 56 kg

DRUGS (6)
  1. PAXIL [Suspect]
     Indication: DEPRESSION
     Dosage: 10MG PER DAY
     Route: 048
     Dates: start: 20030606, end: 20070420
  2. METILDIGOXIN [Concomitant]
     Route: 048
  3. ASPIRIN [Concomitant]
     Route: 048
  4. AMARYL [Concomitant]
     Route: 048
  5. VASOLAN [Concomitant]
     Route: 048
  6. MEVALOTIN [Concomitant]
     Route: 048

REACTIONS (2)
  - FALL [None]
  - WRIST FRACTURE [None]
